FAERS Safety Report 26010296 (Version 1)
Quarter: 2025Q4

REPORT INFORMATION
  Report Type: Spontaneous
  Country: JP (occurrence: JP)
  Receive Date: 20251107
  Receipt Date: 20251107
  Transmission Date: 20260117
  Serious: Yes (Other)
  Sender: ALEXION PHARMACEUTICALS
  Company Number: JP-ASTRAZENECA-202510JPN031564JP

PATIENT
  Age: 57 Year
  Sex: Female
  Weight: 38 kg

DRUGS (1)
  1. DAPAGLIFLOZIN [Suspect]
     Active Substance: DAPAGLIFLOZIN
     Route: 065

REACTIONS (2)
  - Pancreatitis acute [Unknown]
  - Brain natriuretic peptide increased [Unknown]
